FAERS Safety Report 8846458 (Version 1)
Quarter: 2012Q4

REPORT INFORMATION
  Report Type: 
  Country: US (occurrence: US)
  Receive Date: 20121017
  Receipt Date: 20121017
  Transmission Date: 20130627
  Serious: No
  Sender: FDA-Public Use
  Company Number: 2012SP002655

PATIENT
  Age: 66 Year
  Sex: Female
  Weight: 62 kg

DRUGS (3)
  1. LATUDA [Suspect]
     Indication: BIPOLAR I DISORDER
     Route: 048
     Dates: start: 20120905, end: 20120907
  2. LATUDA [Suspect]
     Indication: BIPOLAR I DISORDER
     Route: 048
     Dates: start: 20120908
  3. ASENAPINE [Concomitant]
     Indication: BIPOLAR I DISORDER

REACTIONS (2)
  - Oedema peripheral [Recovered/Resolved]
  - Fatigue [Recovered/Resolved]
